FAERS Safety Report 21033859 (Version 1)
Quarter: 2022Q2

REPORT INFORMATION
  Report Type: Spontaneous
  Country: US (occurrence: None)
  Receive Date: 20220630
  Receipt Date: 20220630
  Transmission Date: 20220721
  Serious: Yes (Disabling)
  Sender: FDA-Public Use
  Company Number: None

PATIENT
  Age: 44 Year
  Sex: Female
  Weight: 54 kg

DRUGS (8)
  1. LEVOTHYROXINE [Suspect]
     Active Substance: LEVOTHYROXINE
     Indication: Autoimmune thyroiditis
     Dosage: OTHER STRENGTH : MCG;?FREQUENCY : AT BEDTIME;?
     Route: 048
     Dates: start: 20220301, end: 20220630
  2. Glucocosteriods [Concomitant]
  3. LEVOTHYROXINE [Concomitant]
     Active Substance: LEVOTHYROXINE
  4. GLYCINE [Concomitant]
     Active Substance: GLYCINE
  5. DIETARY SUPPLEMENT [Concomitant]
     Active Substance: DIETARY SUPPLEMENT
  6. PYRIDOXINE HYDROCHLORIDE [Concomitant]
     Active Substance: PYRIDOXINE HYDROCHLORIDE
  7. DIETARY SUPPLEMENT [Concomitant]
     Active Substance: DIETARY SUPPLEMENT
  8. EPA [Concomitant]

REACTIONS (23)
  - Weight increased [None]
  - Headache [None]
  - Nausea [None]
  - Diarrhoea [None]
  - Appetite disorder [None]
  - Pyrexia [None]
  - Menstruation irregular [None]
  - Heart rate increased [None]
  - Heart rate irregular [None]
  - Chest pain [None]
  - Arthralgia [None]
  - Pain in jaw [None]
  - Dyspnoea [None]
  - Hot flush [None]
  - Hyperhidrosis [None]
  - Tremor [None]
  - Feeling cold [None]
  - Asthenia [None]
  - Fatigue [None]
  - Insomnia [None]
  - Memory impairment [None]
  - Depression [None]
  - Irritability [None]

NARRATIVE: CASE EVENT DATE: 20220630
